FAERS Safety Report 16048214 (Version 2)
Quarter: 2019Q1

REPORT INFORMATION
  Report Type: Spontaneous
  Country: JP (occurrence: JP)
  Receive Date: 20190307
  Receipt Date: 20190326
  Transmission Date: 20190418
  Serious: Yes (Other)
  Sender: FDA-Public Use
  Company Number: JP-PFIZER INC-2019092889

PATIENT
  Age: 59 Year
  Sex: Male

DRUGS (2)
  1. PREDONINE [Concomitant]
     Active Substance: PREDNISOLONE
     Dosage: 5 MG, UNK
  2. BOSULIF [Suspect]
     Active Substance: BOSUTINIB MONOHYDRATE
     Dosage: UNK

REACTIONS (11)
  - Meningitis [Unknown]
  - Faeces soft [Unknown]
  - Alanine aminotransferase increased [Unknown]
  - Hepatitis B DNA assay positive [Recovered/Resolved]
  - Cell marker increased [Unknown]
  - Pruritus [Unknown]
  - Neuralgia [Unknown]
  - Vomiting [Unknown]
  - Arthralgia [Unknown]
  - Aspartate aminotransferase increased [Unknown]
  - Pneumonia [Unknown]
